FAERS Safety Report 5772834-2 (Version None)
Quarter: 2008Q2

REPORT INFORMATION
  Report Type: 
  Country: None (occurrence: None)
  Receive Date: 20080613
  Receipt Date: 20080604
  Transmission Date: 20081010
  Serious: Yes (Other)
  Sender: FDA-Public Use
  Company Number: US-PFIZER INC-2008032053

PATIENT
  Sex: Male
  Weight: 102.1 kg

DRUGS (13)
  1. LIPITOR [Suspect]
     Indication: MYOCARDIAL INFARCTION
     Route: 048
     Dates: start: 20000801, end: 20080407
  2. LIPITOR [Suspect]
     Indication: BLOOD CHOLESTEROL INCREASED
  3. LIPITOR [Suspect]
     Indication: LOW DENSITY LIPOPROTEIN INCREASED
  4. LIPITOR [Suspect]
     Indication: HIGH DENSITY LIPOPROTEIN DECREASED
  5. MONTELUKAST SODIUM [Concomitant]
     Indication: ASTHMA
  6. ALBUTEROL [Concomitant]
     Indication: ASTHMA
  7. VALSARTAN [Concomitant]
     Indication: BLOOD PRESSURE
  8. ASPIRIN [Concomitant]
     Indication: HEART RATE IRREGULAR
  9. ISOSORBIDE DINITRATE [Concomitant]
     Indication: HEART RATE IRREGULAR
  10. METOPROLOL [Concomitant]
     Indication: HEART RATE IRREGULAR
  11. ZOLOFT [Concomitant]
     Indication: PANIC ATTACK
  12. KLOR-CON [Concomitant]
     Indication: BLOOD POTASSIUM DECREASED
  13. OMEPRAZOLE [Concomitant]
     Indication: ABDOMINAL PAIN UPPER

REACTIONS (16)
  - BLOOD SODIUM DECREASED [None]
  - CHONDROPATHY [None]
  - GAIT DISTURBANCE [None]
  - HIGH DENSITY LIPOPROTEIN DECREASED [None]
  - INFLAMMATION [None]
  - LIGAMENT DISORDER [None]
  - LOWER LIMB FRACTURE [None]
  - MOBILITY DECREASED [None]
  - MUSCLE ATROPHY [None]
  - MUSCULAR WEAKNESS [None]
  - MYALGIA [None]
  - NEUTROPHIL COUNT INCREASED [None]
  - PAIN IN EXTREMITY [None]
  - RED BLOOD CELL SEDIMENTATION RATE INCREASED [None]
  - TENDON DISORDER [None]
  - URINE ABNORMALITY [None]
